FAERS Safety Report 15832262 (Version 17)
Quarter: 2025Q3

REPORT INFORMATION
  Report Type: Report from Study
  Country: US (occurrence: US)
  Receive Date: 20190116
  Receipt Date: 20250905
  Transmission Date: 20251020
  Serious: Yes (Death, Hospitalization, Other)
  Sender: TAKEDA
  Company Number: US-SHIRE-US201901542

PATIENT
  Age: 74 Year
  Sex: Female
  Weight: 75 kg

DRUGS (44)
  1. TEDUGLUTIDE [Suspect]
     Active Substance: TEDUGLUTIDE
     Indication: Short-bowel syndrome
  2. TEDUGLUTIDE [Suspect]
     Active Substance: TEDUGLUTIDE
     Dosage: 0.32 MILLILITER, QD
  3. TEDUGLUTIDE [Suspect]
     Active Substance: TEDUGLUTIDE
     Dosage: 0.32 MILLILITER, QD
  4. TEDUGLUTIDE [Suspect]
     Active Substance: TEDUGLUTIDE
     Dosage: 3.2 MILLIGRAM, QD
  5. TEDUGLUTIDE [Suspect]
     Active Substance: TEDUGLUTIDE
     Dosage: 3.2 MILLIGRAM, QD
  6. TEDUGLUTIDE [Suspect]
     Active Substance: TEDUGLUTIDE
     Dosage: 3.2 MILLIGRAM, QD
  7. TEDUGLUTIDE [Suspect]
     Active Substance: TEDUGLUTIDE
     Dosage: 3.2 MILLIGRAM, QD
  8. TEDUGLUTIDE [Suspect]
     Active Substance: TEDUGLUTIDE
     Dosage: 3.2 MILLIGRAM, QD
  9. TEDUGLUTIDE [Suspect]
     Active Substance: TEDUGLUTIDE
     Dosage: 0.32 MILLILITER, QD
  10. TEDUGLUTIDE [Suspect]
     Active Substance: TEDUGLUTIDE
     Dosage: 3.2 MILLIGRAM, QD
  11. TEDUGLUTIDE [Suspect]
     Active Substance: TEDUGLUTIDE
     Dosage: 3.2 MILLIGRAM, QD
  12. TEDUGLUTIDE [Suspect]
     Active Substance: TEDUGLUTIDE
     Dosage: 0.32 MILLILITER, QD
  13. PAXLOVID [Suspect]
     Active Substance: NIRMATRELVIR\RITONAVIR
     Indication: Product used for unknown indication
  14. VOLTAREN [Concomitant]
     Active Substance: DICLOFENAC SODIUM
  15. SYNTHROID [Concomitant]
     Active Substance: LEVOTHYROXINE SODIUM
  16. IMODIUM A-D [Concomitant]
     Active Substance: LOPERAMIDE HYDROCHLORIDE
  17. DIPHENHYDRAMINE HYDROCHLORIDE [Concomitant]
     Active Substance: DIPHENHYDRAMINE HYDROCHLORIDE
  18. PREVACID [Concomitant]
     Active Substance: LANSOPRAZOLE
  19. METOPROLOL TARTRATE [Concomitant]
     Active Substance: METOPROLOL TARTRATE
  20. CYCLOBENZAPRINE [Concomitant]
     Active Substance: CYCLOBENZAPRINE
  21. AMITRIPTYLINE HYDROCHLORIDE [Concomitant]
     Active Substance: AMITRIPTYLINE HYDROCHLORIDE
  22. SPIRONOLACTONE [Concomitant]
     Active Substance: SPIRONOLACTONE
  23. TOPIRAMATE [Concomitant]
     Active Substance: TOPIRAMATE
  24. ECONAZOLE NITRATE [Concomitant]
     Active Substance: ECONAZOLE NITRATE
  25. PRAVASTATIN SODIUM [Concomitant]
     Active Substance: PRAVASTATIN SODIUM
  26. OXYCODONE HYDROCHLORIDE [Concomitant]
     Active Substance: OXYCODONE HYDROCHLORIDE
  27. ATROPINE\DIPHENOXYLATE [Concomitant]
     Active Substance: ATROPINE\DIPHENOXYLATE
  28. PREDNISONE [Concomitant]
     Active Substance: PREDNISONE
  29. RESTASIS [Concomitant]
     Active Substance: CYCLOSPORINE
  30. LEVOTHYROXINE [Concomitant]
     Active Substance: LEVOTHYROXINE
  31. ERYTHROMYCIN [Concomitant]
     Active Substance: ERYTHROMYCIN
  32. UREA [Concomitant]
     Active Substance: UREA
  33. CLARINEX [Concomitant]
     Active Substance: DESLORATADINE
  34. ZINC [Concomitant]
     Active Substance: ZINC
  35. CALCIUM [Concomitant]
     Active Substance: CALCIUM
  36. IRON [Concomitant]
     Active Substance: IRON
  37. VITAMIN D3 [Concomitant]
     Active Substance: CHOLECALCIFEROL
  38. ULORIC [Concomitant]
     Active Substance: FEBUXOSTAT
  39. FLONASE ALLERGY RELIEF [Concomitant]
     Active Substance: FLUTICASONE PROPIONATE
  40. BUMETANIDE [Concomitant]
     Active Substance: BUMETANIDE
  41. CLOBETASOL [Concomitant]
     Active Substance: CLOBETASOL
  42. LIDOCAINE [Concomitant]
     Active Substance: LIDOCAINE
  43. POTASSIUM CHLORIDE [Concomitant]
     Active Substance: POTASSIUM CHLORIDE
  44. METOLAZONE [Concomitant]
     Active Substance: METOLAZONE

REACTIONS (33)
  - Death [Fatal]
  - Staphylococcal infection [Unknown]
  - Skin cancer [Unknown]
  - Rotator cuff syndrome [Recovered/Resolved]
  - Peripheral swelling [Unknown]
  - Blood potassium decreased [Unknown]
  - COVID-19 [Recovered/Resolved]
  - Injection site bruising [Unknown]
  - Injection site mass [Unknown]
  - Needle issue [Unknown]
  - Urticaria [Unknown]
  - Blood creatinine increased [Unknown]
  - Weight fluctuation [Unknown]
  - Procedural pain [Unknown]
  - Intentional product misuse [Unknown]
  - Muscle spasms [Unknown]
  - Illness [Unknown]
  - Skin discolouration [Unknown]
  - Increased appetite [Unknown]
  - Increased tendency to bruise [Unknown]
  - Contusion [Unknown]
  - Eye infection [Unknown]
  - Product use complaint [Unknown]
  - Product dose omission issue [Unknown]
  - Musculoskeletal discomfort [Not Recovered/Not Resolved]
  - Rash [Not Recovered/Not Resolved]
  - Fluid retention [Unknown]
  - Headache [Recovered/Resolved]
  - Decreased appetite [Unknown]
  - Hordeolum [Unknown]
  - Swelling of eyelid [Unknown]
  - Skin abrasion [Unknown]
  - Nausea [Unknown]

NARRATIVE: CASE EVENT DATE: 20250828
